FAERS Safety Report 4779879-X (Version None)
Quarter: 2005Q3

REPORT INFORMATION
  Report Type: 
  Country: None (occurrence: None)
  Receive Date: 20050914
  Receipt Date: 20041004
  Transmission Date: 20060218
  Serious: Yes (Hospitalization, Other)
  Sender: FDA-Public Use
  Company Number: 163-20785-04100086

PATIENT
  Age: 81 Year
  Sex: Female
  Weight: 41.2773 kg

DRUGS (6)
  1. THALOMID [Suspect]
     Indication: COLON CANCER
     Dosage: 300 MG, DAILY, ORAL
     Route: 048
     Dates: start: 20031118, end: 20041006
  2. PROTONIX [Concomitant]
  3. ARICEPT [Concomitant]
  4. COLACE (DOCUSATE SODIUM) [Concomitant]
  5. ZELNORM [Concomitant]
  6. NAMENDA (NAVIDREX-SERPASIL K) (CAPSULES) [Concomitant]

REACTIONS (5)
  - ABDOMINAL MASS [None]
  - DYSPHAGIA [None]
  - MENINGIOMA [None]
  - REGURGITATION OF FOOD [None]
  - WEIGHT DECREASED [None]
